FAERS Safety Report 25668460 (Version 3)
Quarter: 2025Q3

REPORT INFORMATION
  Report Type: Spontaneous
  Country: BR (occurrence: BR)
  Receive Date: 20250812
  Receipt Date: 20250829
  Transmission Date: 20251020
  Serious: Yes (Death, Other)
  Sender: BOEHRINGER INGELHEIM
  Company Number: BR-Komodo Health-a23aa000009Pz4jAAC

PATIENT
  Age: 78 Year
  Sex: Male
  Weight: 50 kg

DRUGS (10)
  1. OLODATEROL HYDROCHLORIDE\TIOTROPIUM BROMIDE MONOHYDRATE [Suspect]
     Active Substance: OLODATEROL HYDROCHLORIDE\TIOTROPIUM BROMIDE MONOHYDRATE
     Indication: Chronic obstructive pulmonary disease
  2. OLODATEROL HYDROCHLORIDE\TIOTROPIUM BROMIDE MONOHYDRATE [Suspect]
     Active Substance: OLODATEROL HYDROCHLORIDE\TIOTROPIUM BROMIDE MONOHYDRATE
     Indication: Emphysema
     Dosage: FORM STRENGTH: 2.5 MICROGRAMS + 2.5 MICROGRAMS. ?2 CONSECUTIVE PUFFS
     Dates: end: 202507
  3. OLODATEROL HYDROCHLORIDE\TIOTROPIUM BROMIDE MONOHYDRATE [Suspect]
     Active Substance: OLODATEROL HYDROCHLORIDE\TIOTROPIUM BROMIDE MONOHYDRATE
     Dosage: FORM STRENGTH: 2.5 MICROGRAMS + 2.5 MICROGRAMS. ?2 PUFFS, (2 PUFFS EVERY 6 HOURS (6:00 A.M., 12:00 P.M., 6:00 P.M., AND 12:00 A.M.))
     Dates: start: 20250730, end: 20250804
  4. QUETIAPINE [Suspect]
     Active Substance: QUETIAPINE
     Indication: Anxiety
  5. FLUTICASONE PROPIONATE [Concomitant]
     Active Substance: FLUTICASONE PROPIONATE
     Indication: Chronic obstructive pulmonary disease
     Dosage: FLIXOTIDE 250 (UNIT OF MEASUREMENT NOT REPORTED) - 2 PUFFS DAILY, ALONG WITH SPIOLTO.
     Dates: end: 2025
  6. FLUTICASONE PROPIONATE [Concomitant]
     Active Substance: FLUTICASONE PROPIONATE
     Dosage: FLIXOTIDE 250 (UNIT OF MEASUREMENT NOT REPORTED) - 2 PUFFS EVERY 12 HOURS (6:00 A.M. AND 6:00 P.M.)
     Dates: start: 2025
  7. ROFLUMILAST [Concomitant]
     Active Substance: ROFLUMILAST
     Indication: Chronic obstructive pulmonary disease
     Dosage: 1 TABLET AFTER LUNCH ON ALTERNATE DAYS
     Dates: end: 2025
  8. DEXILANT [Concomitant]
     Active Substance: DEXLANSOPRAZOLE
     Indication: Gastrooesophageal reflux disease
  9. PANTOPRAZOLE [Concomitant]
     Active Substance: PANTOPRAZOLE
     Indication: Gastrooesophageal reflux disease
  10. DOMPERIDONE [Concomitant]
     Active Substance: DOMPERIDONE
     Indication: Gastrooesophageal reflux disease

REACTIONS (22)
  - Cardiac arrest [Fatal]
  - Acute respiratory failure [Fatal]
  - Hypoxia [Fatal]
  - Chronic obstructive pulmonary disease [Fatal]
  - Cardiac failure [Not Recovered/Not Resolved]
  - Circulatory collapse [Unknown]
  - Constipation [Recovered/Resolved]
  - Extra dose administered [Recovered/Resolved]
  - Dry throat [Not Recovered/Not Resolved]
  - Dysphagia [Not Recovered/Not Resolved]
  - Headache [Unknown]
  - Chest pain [Not Recovered/Not Resolved]
  - Dysphagia [Unknown]
  - Feeling abnormal [Not Recovered/Not Resolved]
  - Dyspnoea [Not Recovered/Not Resolved]
  - Anxiety [Unknown]
  - Pneumonia [Unknown]
  - Lung disorder [Unknown]
  - Hypotension [Unknown]
  - Cardiac disorder [Unknown]
  - Sedation [Unknown]
  - Dyspnoea [Unknown]

NARRATIVE: CASE EVENT DATE: 20240101
